FAERS Safety Report 5211541-1 (Version None)
Quarter: 2007Q1

REPORT INFORMATION
  Report Type: 
  Country: None (occurrence: None)
  Receive Date: 20070117
  Receipt Date: 20070112
  Transmission Date: 20070707
  Serious: Yes (Death)
  Sender: FDA-Public Use
  Company Number: VE-SANOFI-SYNTHELABO-F01200700017

PATIENT
  Sex: Male
  Weight: 45 kg

DRUGS (8)
  1. OMEPRAZOLE [Concomitant]
     Route: 048
  2. LEUCOVORIN CALCIUM [Suspect]
     Route: 041
     Dates: start: 20061211, end: 20061226
  3. FLUOROURACIL [Suspect]
     Route: 041
     Dates: start: 20061211, end: 20061226
  4. INDAPAMIDE [Concomitant]
     Dosage: 1.5 MG
     Route: 048
  5. NIFEDIPINE [Concomitant]
     Dosage: 30 MG
     Route: 048
  6. ATENOLOL [Concomitant]
     Indication: HYPERTENSION
     Dosage: 50 MG
     Route: 048
  7. OXALIPLATIN [Suspect]
     Indication: COLON CANCER
     Route: 041
     Dates: start: 20061211, end: 20061226
  8. HYDROCHLOROTHIAZIDE [Concomitant]
     Dosage: 25 MG
     Route: 048

REACTIONS (5)
  - ASTHENIA [None]
  - DEATH [None]
  - DEHYDRATION [None]
  - DRUG TOXICITY [None]
  - HYPOTENSION [None]
